FAERS Safety Report 13629161 (Version 1)
Quarter: 2017Q2

REPORT INFORMATION
  Report Type: Spontaneous
  Country: US (occurrence: US)
  Receive Date: 20170531
  Receipt Date: 20170531
  Transmission Date: 20170830
  Serious: No
  Sender: FDA-Public Use
  Company Number: US-ASTELLAS-1101754

PATIENT
  Sex: Male

DRUGS (6)
  1. TARCEVA [Suspect]
     Active Substance: ERLOTINIB HYDROCHLORIDE
     Route: 048
     Dates: start: 20120815
  2. DOCETAXEL. [Concomitant]
     Active Substance: DOCETAXEL
  3. TARCEVA [Suspect]
     Active Substance: ERLOTINIB HYDROCHLORIDE
     Indication: PRODUCT USED FOR UNKNOWN INDICATION
     Route: 048
     Dates: start: 20120726
  4. CISPLATIN. [Concomitant]
     Active Substance: CISPLATIN
  5. ALIMTA [Concomitant]
     Active Substance: PEMETREXED DISODIUM
  6. BEVACIZUMAB [Concomitant]
     Active Substance: BEVACIZUMAB

REACTIONS (3)
  - Fatigue [Unknown]
  - Vomiting [Unknown]
  - Rash [Recovering/Resolving]
